FAERS Safety Report 17251477 (Version 1)
Quarter: 2020Q1

REPORT INFORMATION
  Report Type: Spontaneous
  Country: US (occurrence: US)
  Receive Date: 20200109
  Receipt Date: 20200109
  Transmission Date: 20200409
  Serious: No
  Sender: FDA-Public Use
  Company Number: US-009507513-1912USA007073

PATIENT
  Age: 33 Year
  Sex: Male

DRUGS (6)
  1. DEXAMPHETAMINE [Concomitant]
     Active Substance: AMPHETAMINE
  2. PREDNISONE. [Concomitant]
     Active Substance: PREDNISONE
     Indication: HYPERCALCAEMIA
  3. OMEPRAZOLE. [Concomitant]
     Active Substance: OMEPRAZOLE
  4. VENLAFAXINE HYDROCHLORIDE. [Concomitant]
     Active Substance: VENLAFAXINE HYDROCHLORIDE
  5. FOSAMAX [Suspect]
     Active Substance: ALENDRONATE SODIUM
     Indication: HYPERCALCAEMIA
     Route: 048
  6. DIVALPROEX SODIUM. [Concomitant]
     Active Substance: DIVALPROEX SODIUM

REACTIONS (1)
  - Product use in unapproved indication [Unknown]
